FAERS Safety Report 13623121 (Version 1)
Quarter: 2017Q2

REPORT INFORMATION
  Report Type: Report from Study
  Country: CN (occurrence: CN)
  Receive Date: 20170607
  Receipt Date: 20170607
  Transmission Date: 20170830
  Serious: Yes (Death)
  Sender: FDA-Public Use
  Company Number: CN-ROCHE-1864016

PATIENT
  Sex: Female
  Weight: 40 kg

DRUGS (1)
  1. AVASTIN [Suspect]
     Active Substance: BEVACIZUMAB
     Indication: COLON CANCER
     Route: 041
     Dates: start: 20160804

REACTIONS (8)
  - Gait disturbance [Fatal]
  - Liver function test abnormal [Fatal]
  - General physical health deterioration [Unknown]
  - Swelling [Fatal]
  - Organ failure [Fatal]
  - Condition aggravated [Fatal]
  - Liver function test decreased [Unknown]
  - Blood albumin decreased [Unknown]
